FAERS Safety Report 17800035 (Version 2)
Quarter: 2020Q2

REPORT INFORMATION
  Report Type: Report from Study
  Country: CA (occurrence: CA)
  Receive Date: 20200518
  Receipt Date: 20200605
  Transmission Date: 20200714
  Serious: Yes (Hospitalization, Other)
  Sender: FDA-Public Use
  Company Number: CA-JNJFOC-20200513684

PATIENT
  Age: 13 Year
  Sex: Male
  Weight: 51 kg

DRUGS (2)
  1. REMICADE [Suspect]
     Active Substance: INFLIXIMAB
     Indication: CROHN^S DISEASE
     Route: 042
     Dates: start: 20200228
  2. CORTISONE [Concomitant]
     Active Substance: CORTISONE
     Indication: PRODUCT USED FOR UNKNOWN INDICATION
     Route: 048

REACTIONS (7)
  - Procedural complication [Unknown]
  - Product use issue [Unknown]
  - Off label use [Unknown]
  - Gallbladder operation [Unknown]
  - Duodenal perforation [Not Recovered/Not Resolved]
  - Abdominal pain [Unknown]
  - Gastric stent insertion [Unknown]

NARRATIVE: CASE EVENT DATE: 20200228
